FAERS Safety Report 8359260-7 (Version None)
Quarter: 2012Q2

REPORT INFORMATION
  Report Type: 
  Country: None (occurrence: None)
  Receive Date: 20120514
  Receipt Date: 20120514
  Transmission Date: 20120825
  Serious: Yes (Other)
  Sender: FDA-Public Use
  Company Number: None

PATIENT
  Sex: Male
  Weight: 91.173 kg

DRUGS (1)
  1. PROSCAR [Suspect]
     Indication: URINE FLOW DECREASED
     Dosage: 5 MG 1 TAB/D PO
     Route: 048
     Dates: start: 20120416, end: 20120501

REACTIONS (3)
  - CONFUSIONAL STATE [None]
  - FATIGUE [None]
  - DIZZINESS [None]
